FAERS Safety Report 6604910-6 (Version None)
Quarter: 2010Q1

REPORT INFORMATION
  Report Type: 
  Country: None (occurrence: None)
  Receive Date: 20100226
  Receipt Date: 20100218
  Transmission Date: 20100710
  Serious: Yes (Life-Threatening, Other)
  Sender: FDA-Public Use
  Company Number: B0636261A

PATIENT
  Age: 3 Month
  Sex: Male

DRUGS (2)
  1. RELENZA [Suspect]
     Indication: H1N1 INFLUENZA
     Dosage: 10MG TWICE PER DAY
     Route: 055
     Dates: start: 20100212, end: 20100217
  2. UNKNOWN DRUG [Concomitant]

REACTIONS (3)
  - BRONCHOSPASM [None]
  - DRUG ADMINISTRATION ERROR [None]
  - WHEEZING [None]
